FAERS Safety Report 14478058 (Version 1)
Quarter: 2018Q1

REPORT INFORMATION
  Report Type: Spontaneous
  Country: US (occurrence: US)
  Receive Date: 20180201
  Receipt Date: 20180201
  Transmission Date: 20180509
  Serious: No
  Sender: FDA-Public Use
  Company Number: US-JNJFOC-20180124789

PATIENT
  Sex: Female
  Weight: 103.42 kg

DRUGS (2)
  1. STELARA [Suspect]
     Active Substance: USTEKINUMAB
     Indication: PSORIASIS
     Route: 058
     Dates: start: 2017
  2. ROBINUL [Concomitant]
     Active Substance: GLYCOPYRROLATE
     Route: 065

REACTIONS (1)
  - Upper respiratory tract infection [Not Recovered/Not Resolved]
